FAERS Safety Report 7101341-X (Version None)
Quarter: 2010Q4

REPORT INFORMATION
  Report Type: 
  Country: None (occurrence: None)
  Receive Date: 20101115
  Receipt Date: 20101108
  Transmission Date: 20110411
  Serious: Yes (Life-Threatening, Hospitalization, Other)
  Sender: FDA-Public Use
  Company Number: US-CELGENEUS-163-21880-10082805

PATIENT
  Sex: Male

DRUGS (1)
  1. REVLIMID [Suspect]
     Indication: MULTIPLE MYELOMA
     Route: 048
     Dates: start: 20100602, end: 20100101

REACTIONS (3)
  - DERMATITIS EXFOLIATIVE [None]
  - NEUTROPENIA [None]
  - TUBULOINTERSTITIAL NEPHRITIS [None]
